FAERS Safety Report 22256442 (Version 1)
Quarter: 2023Q2

REPORT INFORMATION
  Report Type: Spontaneous
  Country: US (occurrence: US)
  Receive Date: 20230426
  Receipt Date: 20230426
  Transmission Date: 20230722
  Serious: No
  Sender: FDA-Public Use
  Company Number: US-BRACCO-2023US01877

PATIENT
  Age: 61 Year
  Sex: Male

DRUGS (3)
  1. CARDIOGEN-82 [Suspect]
     Active Substance: RUBIDIUM CHLORIDE RB-82
     Indication: Scan myocardial perfusion
     Dosage: 49.9 MCI, TOTAL (STRESS+REST)
     Dates: start: 20230412, end: 20230412
  2. CARDIOGEN-82 [Suspect]
     Active Substance: RUBIDIUM CHLORIDE RB-82
     Indication: Scan myocardial perfusion
     Dosage: 49.9 MCI, TOTAL (STRESS+REST)
     Dates: start: 20230412, end: 20230412
  3. CALCIUM CHLORIDE\POTASSIUM CHLORIDE\SODIUM LACTATE [Concomitant]
     Active Substance: CALCIUM CHLORIDE\POTASSIUM CHLORIDE\SODIUM LACTATE
     Dosage: UNK
     Dates: start: 20230412, end: 20230412

REACTIONS (2)
  - Product preparation error [Unknown]
  - No adverse event [Unknown]

NARRATIVE: CASE EVENT DATE: 20230412
